FAERS Safety Report 21398361 (Version 2)
Quarter: 2022Q4

REPORT INFORMATION
  Report Type: Spontaneous
  Country: US (occurrence: US)
  Receive Date: 20220930
  Receipt Date: 20221020
  Transmission Date: 20230113
  Serious: Yes (Other)
  Sender: FDA-Public Use
  Company Number: US-009507513-2209USA011372

PATIENT
  Sex: Female

DRUGS (1)
  1. SIVEXTRO [Suspect]
     Active Substance: TEDIZOLID PHOSPHATE
     Indication: Osteomyelitis
     Dosage: 200 MILLIGRAM
     Route: 048

REACTIONS (4)
  - Parkinson^s disease [Not Recovered/Not Resolved]
  - Delusion [Unknown]
  - Product prescribing issue [Unknown]
  - Off label use [Unknown]
